FAERS Safety Report 4825487-1 (Version None)
Quarter: 2005Q4

REPORT INFORMATION
  Report Type: 
  Country: None (occurrence: None)
  Receive Date: 20051109
  Receipt Date: 20051101
  Transmission Date: 20060501
  Serious: Yes (Other)
  Sender: FDA-Public Use
  Company Number: 217030

PATIENT
  Age: 58 Year
  Sex: Male
  Weight: 108 kg

DRUGS (8)
  1. MABTHERA(RITUXIMAB) CONC FOR SOLUTION FOR INFUSION [Suspect]
     Indication: CHRONIC LYMPHOCYTIC LEUKAEMIA
     Dosage: 500 MG
     Dates: start: 20040901, end: 20050301
  2. FLUDARABINE PHOSPHATE [Suspect]
     Indication: CHRONIC LYMPHOCYTIC LEUKAEMIA
     Dosage: 25 MG
     Dates: start: 20040901, end: 20050301
  3. CYCLOPHOSPHAMIDE [Suspect]
     Indication: CHRONIC LYMPHOCYTIC LEUKAEMIA
     Dosage: 250 MG
     Dates: start: 20040901, end: 20050301
  4. COTRIM FORTE(SULFAMETHOXAZOLE, TRIMETHOPRIM) [Concomitant]
  5. FUROSEMIDE [Concomitant]
  6. ESIDRIX [Concomitant]
  7. LEVOFLOXACIN [Concomitant]
  8. AMPHOMORONAL (AMPHOTERICIN B) [Concomitant]

REACTIONS (9)
  - BLOOD ALKALINE PHOSPHATASE INCREASED [None]
  - BONE MARROW FAILURE [None]
  - BONE MARROW TOXICITY [None]
  - GAMMA-GLUTAMYLTRANSFERASE INCREASED [None]
  - HYPERHIDROSIS [None]
  - LEUKOPENIA [None]
  - SPLEEN DISORDER [None]
  - SPLENOMEGALY [None]
  - THERAPEUTIC RESPONSE DECREASED [None]
